FAERS Safety Report 14993086 (Version 1)
Quarter: 2018Q2

REPORT INFORMATION
  Report Type: Spontaneous
  Country: US (occurrence: US)
  Receive Date: 20180517
  Receipt Date: 20180517
  Transmission Date: 20180711
  Serious: Yes (Hospitalization)
  Sender: FDA-Public Use
  Company Number: None

PATIENT
  Age: 56 Year
  Sex: Female

DRUGS (16)
  1. TYLENOL [Concomitant]
     Active Substance: ACETAMINOPHEN
  2. TUMS [Concomitant]
     Active Substance: CALCIUM CARBONATE
  3. CLARITIN [Concomitant]
     Active Substance: LORATADINE
  4. ZINC. [Concomitant]
     Active Substance: ZINC
  5. VITAMIN C [Concomitant]
     Active Substance: ASCORBIC ACID
  6. OMEGA-3 ACIDS [Concomitant]
     Active Substance: OMEGA-3 FATTY ACIDS
  7. MULTIVITAMINS [Concomitant]
     Active Substance: VITAMINS
  8. DEXAMETHASONE. [Concomitant]
     Active Substance: DEXAMETHASONE
  9. AROMASIN [Concomitant]
     Active Substance: EXEMESTANE
  10. VITAMIN D [Concomitant]
     Active Substance: CHOLECALCIFEROL
  11. SELENIUM [Concomitant]
     Active Substance: SELENIUM
  12. AFINITOR [Suspect]
     Active Substance: EVEROLIMUS
     Indication: NEOPLASM MALIGNANT
     Route: 048
     Dates: start: 20171212
  13. FOLIC ACID. [Concomitant]
     Active Substance: FOLIC ACID
  14. FLONASE [Concomitant]
     Active Substance: FLUTICASONE PROPIONATE
  15. ZOMETA [Concomitant]
     Active Substance: ZOLEDRONIC ACID
  16. ADVIL [Concomitant]
     Active Substance: IBUPROFEN

REACTIONS (1)
  - Gastrointestinal infection [None]

NARRATIVE: CASE EVENT DATE: 20180510
